FAERS Safety Report 7465997-4 (Version None)
Quarter: 2011Q2

REPORT INFORMATION
  Report Type: 
  Country: None (occurrence: None)
  Receive Date: 20110509
  Receipt Date: 20100514
  Transmission Date: 20111010
  Serious: No
  Sender: FDA-Public Use
  Company Number: US-ALEXION-A201000564

PATIENT
  Sex: Female

DRUGS (16)
  1. SOLIRIS [Suspect]
     Dosage: 900 MG, Q2W
     Route: 042
     Dates: start: 20100420
  2. LASIX [Concomitant]
     Dosage: UNK
  3. TYLENOL (CAPLET) [Concomitant]
  4. FOLIC ACID [Concomitant]
     Dosage: UNK
  5. GLUCOSAMINE/CHONDROITIN            /01625901/ [Concomitant]
     Dosage: UNK
  6. PREDNISONE [Concomitant]
  7. VITAMIN D [Concomitant]
  8. NAPROXEN (ALEVE) [Concomitant]
     Dosage: UNK
  9. AMBIEN [Concomitant]
     Dosage: UNK
  10. TOPROL-XL [Concomitant]
     Dosage: UNK
  11. FERROUS SULFATE TAB [Concomitant]
  12. SOLIRIS [Suspect]
     Indication: PAROXYSMAL NOCTURNAL HAEMOGLOBINURIA
     Dosage: 600 MG, QW
     Route: 042
     Dates: start: 20100303, end: 20100413
  13. CALCIUM [Concomitant]
     Dosage: UNK
  14. OXYCODONE HCL AND ACETAMINOPHEN [Concomitant]
     Dosage: UNK
  15. MICRO-K [Concomitant]
     Dosage: UNK
  16. VALIUM [Concomitant]

REACTIONS (5)
  - ABSCESS LIMB [None]
  - HAEMOGLOBIN DECREASED [None]
  - BLOOD LACTATE DEHYDROGENASE INCREASED [None]
  - JOINT EFFUSION [None]
  - STAPHYLOCOCCAL INFECTION [None]
